FAERS Safety Report 5278958-0 (Version None)
Quarter: 2007Q1

REPORT INFORMATION
  Report Type: 
  Country: None (occurrence: None)
  Receive Date: 20070328
  Receipt Date: 20061213
  Transmission Date: 20070707
  Serious: No
  Sender: FDA-Public Use
  Company Number: US-AMGEN-US203409

PATIENT
  Sex: Male

DRUGS (6)
  1. NEULASTA [Suspect]
     Indication: CHEMOTHERAPY
     Route: 065
     Dates: start: 20061206
  2. DACARBAZINE [Concomitant]
     Route: 065
  3. DOXORUBICIN HYDROCHLORIDE [Concomitant]
     Route: 065
  4. VINBLASTINE SULFATE [Concomitant]
     Route: 065
  5. BLEOMYCIN [Concomitant]
     Route: 065
  6. BACTRIM [Concomitant]
     Route: 065

REACTIONS (2)
  - BONE PAIN [None]
  - NEUTROPHIL COUNT DECREASED [None]
